FAERS Safety Report 24276108 (Version 2)
Quarter: 2025Q2

REPORT INFORMATION
  Report Type: Spontaneous
  Country: CA (occurrence: CA)
  Receive Date: 20240903
  Receipt Date: 20250505
  Transmission Date: 20250716
  Serious: Yes (Other)
  Sender: CELLTRION
  Company Number: CA-CELLTRION INC.-2024CA017957

PATIENT

DRUGS (11)
  1. YUFLYMA [Suspect]
     Active Substance: ADALIMUMAB-AATY
     Indication: Rheumatoid arthritis
     Dosage: 40 MG, Q2WEEKS
     Route: 058
     Dates: start: 20240708
  2. METHOTREXATE [Concomitant]
     Active Substance: METHOTREXATE
     Dosage: 20 MG, 1/WEEK
  3. HYDROXYCHLOROQUINE [Concomitant]
     Active Substance: HYDROXYCHLOROQUINE
  4. SULFASALAZINE [Concomitant]
     Active Substance: SULFASALAZINE
  5. SULFASALAZINE [Concomitant]
     Active Substance: SULFASALAZINE
  6. VITAMIN D NOS [Concomitant]
     Active Substance: CHOLECALCIFEROL\ERGOCALCIFEROL
  7. COENZYME Q10 [Concomitant]
     Active Substance: DIETARY SUPPLEMENT\UBIDECARENONE
  8. VITAMIN B12 [Concomitant]
     Active Substance: CYANOCOBALAMIN
  9. FOLIC ACID [Concomitant]
     Active Substance: FOLIC ACID
     Dosage: 5MG ONCE A WEEK AFTER MTX (METHOTREXATE)
  10. CYANOCOBALAMIN [Concomitant]
     Active Substance: CYANOCOBALAMIN
  11. UBIDECARENONE [Concomitant]
     Active Substance: UBIDECARENONE

REACTIONS (3)
  - Foot fracture [Unknown]
  - Pain [Unknown]
  - Product distribution issue [Unknown]
